FAERS Safety Report 16816779 (Version 1)
Quarter: 2019Q3

REPORT INFORMATION
  Report Type: Report from Study
  Country: GB (occurrence: GB)
  Receive Date: 20190917
  Receipt Date: 20190917
  Transmission Date: 20191005
  Serious: Yes (Death, Hospitalization, Other)
  Sender: FDA-Public Use
  Company Number: GB-EMD SERONO-9112869

PATIENT
  Age: 26 Year
  Sex: Male

DRUGS (1)
  1. MAVENCLAD [Suspect]
     Active Substance: CLADRIBINE
     Indication: MULTIPLE SCLEROSIS
     Dosage: FIRST WEEK THERAPY: TWO TABLETS (EACH OF 10 MG) ON DAY 1 AND ONE TABLET ON DAYS 2 TO 5.
     Route: 048
     Dates: start: 20190603

REACTIONS (5)
  - Pneumonia aspiration [Recovered/Resolved]
  - Pneumothorax [Unknown]
  - Death [Fatal]
  - Lower respiratory tract infection [Unknown]
  - Choking [Unknown]

NARRATIVE: CASE EVENT DATE: 20190910
